FAERS Safety Report 4539019-9 (Version None)
Quarter: 2004Q4

REPORT INFORMATION
  Report Type: 
  Country: None (occurrence: None)
  Receive Date: 20041222
  Receipt Date: 20041203
  Transmission Date: 20050328
  Serious: Yes (Hospitalization, Other)
  Sender: FDA-Public Use
  Company Number: USA040874726

PATIENT
  Age: 77 Year
  Sex: Female
  Weight: 50 kg

DRUGS (5)
  1. FORTEO [Suspect]
     Indication: OSTEOPOROSIS
     Dosage: 20 UG DAY
     Dates: start: 20040401
  2. PACERONE [Concomitant]
  3. ZYRTEC [Concomitant]
  4. MULTIVITAMIN [Concomitant]
  5. CALCIUM AND VITAMIN D [Concomitant]

REACTIONS (13)
  - FAILURE OF IMPLANT [None]
  - FALL [None]
  - FEELING HOT [None]
  - GENERALISED OEDEMA [None]
  - HIP FRACTURE [None]
  - IMPAIRED HEALING [None]
  - INJECTION SITE BURNING [None]
  - INJECTION SITE HAEMORRHAGE [None]
  - INJECTION SITE PAIN [None]
  - NAIL DISORDER [None]
  - PHARMACEUTICAL PRODUCT COMPLAINT [None]
  - POST PROCEDURAL COMPLICATION [None]
  - WEIGHT INCREASED [None]
